FAERS Safety Report 8110848-8 (Version None)
Quarter: 2012Q1

REPORT INFORMATION
  Report Type: 
  Country: None (occurrence: None)
  Receive Date: 20120203
  Receipt Date: 20120126
  Transmission Date: 20120608
  Serious: Yes (Hospitalization)
  Sender: FDA-Public Use
  Company Number: JP-JNJFOC-20111211300

PATIENT
  Sex: Female
  Weight: 56 kg

DRUGS (24)
  1. TAPENTADOL HYDROCHLORIDE [Suspect]
     Indication: CANCER PAIN
     Route: 048
     Dates: start: 20111207, end: 20111226
  2. WARFARIN SODIUM [Concomitant]
     Indication: PELVIC VENOUS THROMBOSIS
     Route: 048
     Dates: end: 20111224
  3. MAGNESIUM SULFATE [Concomitant]
     Route: 048
     Dates: start: 20111220, end: 20111220
  4. MAGNESIUM SULFATE [Concomitant]
     Route: 048
     Dates: start: 20111206, end: 20111219
  5. SODIUM CHLORIDE [Concomitant]
     Indication: CHEMOTHERAPY
     Route: 041
     Dates: start: 20111220, end: 20111220
  6. CHLOR-TRIMETON [Concomitant]
     Indication: CHEMOTHERAPY
     Route: 041
     Dates: start: 20111220, end: 20111220
  7. BETAMETHASONE [Concomitant]
     Indication: HYDROCEPHALUS
     Route: 048
  8. RANITIDINE [Concomitant]
     Indication: CHEMOTHERAPY
     Route: 041
     Dates: start: 20111220, end: 20111220
  9. TAXOL [Concomitant]
     Indication: CHEMOTHERAPY
     Route: 041
     Dates: start: 20111220, end: 20111220
  10. GEMCITABINE HYDROCHLORIDE [Suspect]
     Indication: CHEMOTHERAPY
     Dates: start: 20111108, end: 20111220
  11. MAGNESIUM SULFATE [Concomitant]
     Indication: CONSTIPATION PROPHYLAXIS
     Route: 048
     Dates: start: 20111221
  12. LECICARBON [Concomitant]
     Indication: CONSTIPATION PROPHYLAXIS
     Route: 054
     Dates: start: 20111224
  13. RESPLEN [Concomitant]
     Indication: COUGH
     Route: 048
  14. LANSOPRAZOLE [Concomitant]
     Indication: GASTRITIS PROPHYLAXIS
     Route: 048
  15. GRANISETRON [Concomitant]
     Indication: CHEMOTHERAPY
     Route: 041
     Dates: start: 20111220, end: 20111220
  16. DEXAMETHASONE SODIUM PHOSPHATE [Concomitant]
     Indication: CHEMOTHERAPY
     Route: 041
     Dates: start: 20111220, end: 20111220
  17. LACTEC [Concomitant]
     Indication: FLUID REPLACEMENT
     Route: 041
     Dates: start: 20111224, end: 20111224
  18. GEMZAR [Concomitant]
     Indication: CHEMOTHERAPY
     Route: 041
     Dates: start: 20111220, end: 20111220
  19. NOVAMIN [Concomitant]
     Indication: PROPHYLAXIS OF NAUSEA AND VOMITING
     Route: 048
     Dates: start: 20111206, end: 20111220
  20. LYRICA [Concomitant]
     Indication: NEUROPATHY PERIPHERAL
     Route: 048
  21. NOVAMIN [Concomitant]
     Route: 048
     Dates: start: 20111206, end: 20111220
  22. PACLITAXEL [Suspect]
     Indication: CHEMOTHERAPY
     Dates: start: 20111108, end: 20111220
  23. MEIACT [Concomitant]
     Indication: ECZEMA
     Route: 048
  24. PURSENNID [Concomitant]
     Indication: CONSTIPATION
     Route: 048

REACTIONS (1)
  - INTERSTITIAL LUNG DISEASE [None]
